FAERS Safety Report 22347545 (Version 1)
Quarter: 2023Q2

REPORT INFORMATION
  Report Type: Spontaneous
  Country: US (occurrence: US)
  Receive Date: 20230522
  Receipt Date: 20230522
  Transmission Date: 20230721
  Serious: Yes (Other)
  Sender: FDA-Public Use
  Company Number: US-GLAXOSMITHKLINE-USCH2023021070

PATIENT

DRUGS (1)
  1. TUMS ULTRA [Suspect]
     Active Substance: CALCIUM CARBONATE
     Indication: Dyspepsia
     Dosage: UNK

REACTIONS (1)
  - Nephrolithiasis [Unknown]
